FAERS Safety Report 26068962 (Version 1)
Quarter: 2025Q4

REPORT INFORMATION
  Report Type: Spontaneous
  Country: CN (occurrence: CN)
  Receive Date: 20251120
  Receipt Date: 20251120
  Transmission Date: 20260118
  Serious: Yes (Other)
  Sender: ABBVIE
  Company Number: CN-ABBVIE-6554123

PATIENT
  Age: 65 Year
  Sex: Male
  Weight: 72 kg

DRUGS (2)
  1. VENETOCLAX [Suspect]
     Active Substance: VENETOCLAX
     Indication: Neoplasm prophylaxis
     Route: 048
     Dates: start: 20250519, end: 20251021
  2. AZACITIDINE [Concomitant]
     Active Substance: AZACITIDINE
     Indication: Chemotherapy
     Dosage: INTRAVENOUS DRIP
     Route: 065
     Dates: start: 20250519, end: 20251021

REACTIONS (2)
  - Myelosuppression [Recovering/Resolving]
  - Lymphatic disorder [Recovering/Resolving]

NARRATIVE: CASE EVENT DATE: 20251021
